FAERS Safety Report 6501959-9 (Version None)
Quarter: 2009Q4

REPORT INFORMATION
  Report Type: 
  Country: None (occurrence: None)
  Receive Date: 20091216
  Receipt Date: 20091203
  Transmission Date: 20100525
  Serious: Yes (Death)
  Sender: FDA-Public Use
  Company Number: KR-PFIZER INC-2009305236

PATIENT
  Age: 70 Year
  Sex: Female

DRUGS (5)
  1. FLUCONAZOLE [Suspect]
     Indication: FUNGAEMIA
     Dosage: 400 MG/DAY
     Route: 042
  2. CEFOTAXIME [Concomitant]
     Indication: ANTIBIOTIC THERAPY
     Dosage: 2 G, 3X/DAY
  3. VANCOMYCIN [Concomitant]
     Indication: INFECTION
     Dosage: 1 G, 2X/DAY
     Route: 042
  4. AMPHOTERICIN B [Concomitant]
     Indication: FUNGAL INFECTION
     Dosage: 0.5 MG/KG/DAY
  5. AMPHOTERICIN B [Concomitant]
     Dosage: 0.7 MG/KG/DAY

REACTIONS (1)
  - FUNGAEMIA [None]
